FAERS Safety Report 25471101 (Version 1)
Quarter: 2025Q2

REPORT INFORMATION
  Report Type: Spontaneous
  Country: US (occurrence: US)
  Receive Date: 20250624
  Receipt Date: 20250624
  Transmission Date: 20250716
  Serious: No
  Sender: AUROBINDO
  Company Number: US-AUROBINDO-AUR-APL-2025-009488

PATIENT
  Sex: Male

DRUGS (1)
  1. ZOLPIDEM TARTRATE [Suspect]
     Active Substance: ZOLPIDEM TARTRATE
     Indication: Insomnia
     Route: 048

REACTIONS (2)
  - Drug ineffective [Unknown]
  - Product substitution issue [Unknown]
